FAERS Safety Report 6586078-8 (Version None)
Quarter: 2010Q1

REPORT INFORMATION
  Report Type: 
  Country: None (occurrence: None)
  Receive Date: 20100217
  Receipt Date: 20090126
  Transmission Date: 20100710
  Serious: No
  Sender: FDA-Public Use
  Company Number: US-ALLERGAN-0900922US

PATIENT
  Age: 51 Year
  Sex: Female

DRUGS (1)
  1. BOTOX [Suspect]
     Indication: STRABISMUS
     Dosage: UNK, SINGLE
     Route: 030
     Dates: start: 20090114, end: 20090114

REACTIONS (3)
  - DRY EYE [None]
  - EYELID PTOSIS [None]
  - VISION BLURRED [None]
